FAERS Safety Report 5804145-0 (Version None)
Quarter: 2008Q3

REPORT INFORMATION
  Report Type: 
  Country: None (occurrence: None)
  Receive Date: 20080707
  Receipt Date: 20080707
  Transmission Date: 20090109
  Serious: No
  Sender: FDA-Public Use
  Company Number: None

PATIENT
  Age: 50 Year
  Sex: Male
  Weight: 87 kg

DRUGS (3)
  1. CELLCEPT [Suspect]
     Indication: IMMUNOSUPPRESSION
     Dosage: 250 MG QID PO
     Route: 048
     Dates: start: 20061011, end: 20070817
  2. PROGRAF [Concomitant]
  3. MYFORTIC [Concomitant]

REACTIONS (3)
  - MEMORY IMPAIRMENT [None]
  - MUSCLE FATIGUE [None]
  - SOMNOLENCE [None]
